FAERS Safety Report 8462747-X (Version None)
Quarter: 2012Q2

REPORT INFORMATION
  Report Type: 
  Country: None (occurrence: None)
  Receive Date: 20120625
  Receipt Date: 20120620
  Transmission Date: 20120825
  Serious: Yes (Hospitalization)
  Sender: FDA-Public Use
  Company Number: FR-ROCHE-1080543

PATIENT
  Age: 86 Year
  Sex: Female

DRUGS (7)
  1. SIMVASTATIN [Concomitant]
  2. KEPPRA [Suspect]
     Indication: PRODUCT USED FOR UNKNOWN INDICATION
     Route: 048
     Dates: start: 20120216, end: 20120220
  3. LEVOTHYROXINE SODIUM [Concomitant]
  4. FELODIPINE [Concomitant]
  5. ZOLPIDEM TARTRATE [Concomitant]
  6. CLONAZEPAM [Suspect]
     Indication: PRODUCT USED FOR UNKNOWN INDICATION
     Route: 048
     Dates: start: 20120215, end: 20120215
  7. AMOXICILLIN [Suspect]
     Indication: PRODUCT USED FOR UNKNOWN INDICATION
     Dosage: BRAND FROM TEVA PHARMACEUTICAL
     Route: 048
     Dates: start: 20120216, end: 20120220

REACTIONS (1)
  - NEUTROPENIA [None]
